FAERS Safety Report 20743547 (Version 4)
Quarter: 2022Q3

REPORT INFORMATION
  Report Type: Report from Study
  Country: US (occurrence: US)
  Receive Date: 20220425
  Receipt Date: 20220905
  Transmission Date: 20221027
  Serious: No
  Sender: FDA-Public Use
  Company Number: US-KYOWAKIRIN-2022BKK005725

PATIENT

DRUGS (1)
  1. MOGAMULIZUMAB [Suspect]
     Active Substance: MOGAMULIZUMAB
     Indication: Product used for unknown indication
     Dosage: UNK, 1X/2 WEEKS, UNK (EVERY OTHER WEEK)
     Route: 042
     Dates: start: 202102

REACTIONS (6)
  - Hypokinesia [Unknown]
  - Blood glucose increased [Unknown]
  - Pain [Unknown]
  - Stomatitis [Unknown]
  - Skin plaque [Unknown]
  - Inappropriate schedule of product administration [Unknown]

NARRATIVE: CASE EVENT DATE: 20210201
